FAERS Safety Report 17687559 (Version 3)
Quarter: 2020Q2

REPORT INFORMATION
  Report Type: Spontaneous
  Country: AT (occurrence: AT)
  Receive Date: 20200421
  Receipt Date: 20200609
  Transmission Date: 20200714
  Serious: Yes (Death, Hospitalization, Other)
  Sender: FDA-Public Use
  Company Number: AT-CELLTRION INC.-2020AT021728

PATIENT

DRUGS (7)
  1. DOXORUBICIN [Suspect]
     Active Substance: DOXORUBICIN
     Indication: SPLENIC MARGINAL ZONE LYMPHOMA STAGE IV
     Route: 065
  2. VINCRISTINE [Suspect]
     Active Substance: VINCRISTINE
     Indication: SPLENIC MARGINAL ZONE LYMPHOMA STAGE IV
     Dosage: UNK
     Route: 065
  3. FILGRASTIM [Concomitant]
     Active Substance: FILGRASTIM
     Indication: FEBRILE NEUTROPENIA
     Dosage: UNK
     Route: 065
  4. RITUXIMAB (UNKNOWN) [Suspect]
     Active Substance: RITUXIMAB
     Indication: SPLENIC MARGINAL ZONE LYMPHOMA STAGE IV
     Dosage: UNK
     Route: 065
  5. FILGRASTIM [Concomitant]
     Active Substance: FILGRASTIM
     Dosage: 2 X 30 MIO U
     Route: 065
  6. PREDNISONE. [Suspect]
     Active Substance: PREDNISONE
     Indication: SPLENIC MARGINAL ZONE LYMPHOMA STAGE IV
     Dosage: UNK
     Route: 065
  7. CYCLOPHOSPHAMIDE. [Suspect]
     Active Substance: CYCLOPHOSPHAMIDE
     Indication: SPLENIC MARGINAL ZONE LYMPHOMA STAGE IV
     Dosage: UNK
     Route: 065

REACTIONS (19)
  - Febrile neutropenia [Fatal]
  - Lymphopenia [Fatal]
  - Ischaemic stroke [Fatal]
  - Hypoaesthesia [Fatal]
  - Malignant neoplasm progression [Unknown]
  - Product use in unapproved indication [Unknown]
  - Central nervous system vasculitis [Fatal]
  - Confusional state [Fatal]
  - Herpes simplex encephalitis [Fatal]
  - Headache [Unknown]
  - Asthenia [Fatal]
  - Herpes simplex [Fatal]
  - Splenic marginal zone lymphoma [Unknown]
  - Pyrexia [Unknown]
  - Epilepsy [Unknown]
  - Disturbance in attention [Fatal]
  - Thalamic infarction [Fatal]
  - Viral vasculitis [Fatal]
  - Sinusitis [Fatal]
